FAERS Safety Report 5081344-X (Version None)
Quarter: 2006Q3

REPORT INFORMATION
  Report Type: 
  Country: None (occurrence: None)
  Receive Date: 20060811
  Receipt Date: 20060801
  Transmission Date: 20061208
  Serious: Yes (Hospitalization)
  Sender: FDA-Public Use
  Company Number: S06-USA-01877-01

PATIENT
  Age: 26 Year
  Sex: Male

DRUGS (3)
  1. LEXAPRO [Suspect]
     Indication: STRESS
     Dosage: 10 MG QD PO
     Route: 048
     Dates: start: 20060201, end: 20060201
  2. LEXAPRO [Suspect]
     Indication: STRESS
     Dosage: 10 MG ONCE PO
     Route: 048
     Dates: start: 20060510, end: 20060510
  3. XANAX [Concomitant]

REACTIONS (13)
  - ABDOMINAL PAIN UPPER [None]
  - ANXIETY [None]
  - BACTERIAL INFECTION [None]
  - DEHYDRATION [None]
  - DIARRHOEA [None]
  - GASTROINTESTINAL INFECTION [None]
  - HYPERACUSIS [None]
  - MENTAL IMPAIRMENT [None]
  - NAUSEA [None]
  - PANIC ATTACK [None]
  - PARAESTHESIA [None]
  - PHARYNGEAL OEDEMA [None]
  - PRURITUS [None]
